FAERS Safety Report 10201413 (Version 1)
Quarter: 2014Q2

REPORT INFORMATION
  Report Type: Spontaneous
  Country: GB (occurrence: GB)
  Receive Date: 20140528
  Receipt Date: 20140528
  Transmission Date: 20141212
  Serious: Yes (Other)
  Sender: FDA-Public Use
  Company Number: PHHY2014GB064533

PATIENT
  Age: 35 Year
  Sex: Female

DRUGS (1)
  1. PHENOXYMETHYLPENICILLIN [Suspect]
     Indication: OROPHARYNGEAL PAIN
     Dosage: 2 DF, QID
     Route: 048
     Dates: start: 20140302, end: 20140317

REACTIONS (5)
  - Foetal growth restriction [Unknown]
  - Abortion spontaneous [Unknown]
  - Haemorrhage [Not Recovered/Not Resolved]
  - Abdominal pain [Not Recovered/Not Resolved]
  - Exposure during pregnancy [Unknown]
